FAERS Safety Report 7037692-7 (Version None)
Quarter: 2010Q4

REPORT INFORMATION
  Report Type: 
  Country: None (occurrence: None)
  Receive Date: 20101011
  Receipt Date: 20101011
  Transmission Date: 20110411
  Serious: Yes (Hospitalization)
  Sender: FDA-Public Use
  Company Number: JP-ABBOTT-10P-087-0666329-00

PATIENT
  Sex: Female
  Weight: 42.5 kg

DRUGS (17)
  1. HUMIRA [Suspect]
     Indication: RHEUMATOID ARTHRITIS
     Route: 058
     Dates: start: 20100319, end: 20100726
  2. METHOTREXATE [Suspect]
     Indication: RHEUMATOID ARTHRITIS
     Dates: start: 20100318, end: 20100726
  3. PREDNISOLONE [Concomitant]
     Indication: RHEUMATOID ARTHRITIS
     Route: 048
     Dates: start: 20100318, end: 20100726
  4. PREDNISOLONE [Concomitant]
     Dates: start: 20100726, end: 20100801
  5. PREDNISOLONE [Concomitant]
     Dates: start: 20100907
  6. ISONIAZID [Concomitant]
     Indication: ANTIBIOTIC PROPHYLAXIS
     Dosage: DAILY DOSE: 300MG
     Route: 048
     Dates: start: 20100519, end: 20100726
  7. FOLIC ACID [Concomitant]
     Indication: PROPHYLAXIS
     Route: 048
     Dates: start: 20100320, end: 20100726
  8. FOLIC ACID [Concomitant]
     Indication: ADVERSE DRUG REACTION
  9. RABEPRAZOLE SODIUM [Concomitant]
     Indication: PROPHYLAXIS
     Dosage: DAILY DOSE: 10MG
     Route: 048
     Dates: start: 20100318
  10. RABEPRAZOLE SODIUM [Concomitant]
     Indication: ULCER
  11. AMLODIPINE BESYLATE [Concomitant]
     Indication: HYPERTENSION
     Dosage: DAILY DOSE: 5MG
     Route: 048
  12. CELECOXIB [Concomitant]
     Indication: PRODUCT USED FOR UNKNOWN INDICATION
     Dosage: DAILY DOSE: 400MG
     Route: 048
     Dates: start: 20100407
  13. ETODOLAC [Concomitant]
     Indication: RHEUMATOID ARTHRITIS
     Route: 048
     Dates: start: 20100602, end: 20100726
  14. STEROID [Concomitant]
     Indication: PRODUCT USED FOR UNKNOWN INDICATION
     Dosage: DAILY DOSE: 40MG
  15. STEROID [Concomitant]
     Dosage: DAILY DOSE: 20MG
  16. STEROID [Concomitant]
     Dosage: DAILY DOSE: 10MG
  17. ALENDRONATE SODIUM HYDRATE [Concomitant]
     Indication: OSTEOPOROSIS
     Route: 048
     Dates: start: 20100602, end: 20100726

REACTIONS (2)
  - INTERSTITIAL LUNG DISEASE [None]
  - OXYGEN SATURATION DECREASED [None]
